FAERS Safety Report 10736309 (Version 1)
Quarter: 2015Q1

REPORT INFORMATION
  Report Type: Spontaneous
  Country: US (occurrence: None)
  Receive Date: 20150121
  Receipt Date: 20150121
  Transmission Date: 20150721
  Serious: Yes (Other)
  Sender: FDA-Public Use
  Company Number: 201501088

PATIENT
  Age: 46 Year
  Sex: Male

DRUGS (1)
  1. TESTIM [Suspect]
     Active Substance: TESTOSTERONE
     Route: 062
     Dates: start: 201012, end: 201102

REACTIONS (6)
  - Impaired work ability [None]
  - Economic problem [None]
  - Shoulder operation [None]
  - Pain [None]
  - Pulmonary embolism [None]
  - Anxiety [None]

NARRATIVE: CASE EVENT DATE: 20110212
